FAERS Safety Report 5911459-2 (Version None)
Quarter: 2008Q4

REPORT INFORMATION
  Report Type: 
  Country: None (occurrence: None)
  Receive Date: 20081002
  Receipt Date: 20080725
  Transmission Date: 20090506
  Serious: Yes (Disabling)
  Sender: FDA-Public Use
  Company Number: APP200800702

PATIENT
  Sex: Female

DRUGS (4)
  1. BUPIVACAINE [Suspect]
     Indication: MUSCULOSKELETAL PAIN
     Dosage: 300 ML, INTRA-ARTICULAR, 300 ML, CONTINUOUS VIA PAIN PUMP, INTRA-ARTICULAR
     Route: 014
     Dates: start: 20040130
  2. BUPIVACAINE [Suspect]
     Indication: MUSCULOSKELETAL PAIN
     Dosage: 300 ML, INTRA-ARTICULAR, 300 ML, CONTINUOUS VIA PAIN PUMP, INTRA-ARTICULAR
     Route: 014
     Dates: start: 20041206
  3. PAINBUSTER PAIN PUMP [Suspect]
     Indication: MUSCULOSKELETAL PAIN
     Dates: start: 20040130
  4. PAINBUSTER PAIN PUMP [Suspect]
     Indication: MUSCULOSKELETAL PAIN
     Dates: start: 20041206

REACTIONS (2)
  - CHONDROLYSIS [None]
  - MUSCULOSKELETAL PAIN [None]
